FAERS Safety Report 8183734-5 (Version None)
Quarter: 2012Q1

REPORT INFORMATION
  Report Type: 
  Country: None (occurrence: None)
  Receive Date: 20120305
  Receipt Date: 20120227
  Transmission Date: 20120608
  Serious: Yes (Other)
  Sender: FDA-Public Use
  Company Number: PHEH2012US004712

PATIENT
  Sex: Female

DRUGS (2)
  1. ORVAST [Concomitant]
  2. DIOVAN HCT [Suspect]
     Dosage: 1 DF (160/12.5 MG), DAILY
     Dates: start: 20010101

REACTIONS (1)
  - INTRACRANIAL ANEURYSM [None]
